FAERS Safety Report 11716554 (Version 2)
Quarter: 2015Q4

REPORT INFORMATION
  Report Type: Spontaneous
  Country: US (occurrence: US)
  Receive Date: 20151104
  Receipt Date: 20151110
  Transmission Date: 20160304
  Serious: No
  Sender: FDA-Public Use
  Company Number: US-ELI_LILLY_AND_COMPANY-US201104001486

PATIENT
  Age: 64 Year
  Sex: Female

DRUGS (8)
  1. FORTEO [Suspect]
     Active Substance: TERIPARATIDE
     Dosage: 20 UG, QD
  2. LAMICTAL [Concomitant]
     Active Substance: LAMOTRIGINE
     Dosage: 25 MG, QD
  3. PRIMIDONE. [Concomitant]
     Active Substance: PRIMIDONE
     Dosage: UNK, UNKNOWN
  4. FORTEO [Suspect]
     Active Substance: TERIPARATIDE
     Dosage: 20 UG, QD
  5. AMANTADINE [Concomitant]
     Active Substance: AMANTADINE
  6. FORTEO [Suspect]
     Active Substance: TERIPARATIDE
     Dosage: 20 UG, QD
  7. PRIMIDONE. [Concomitant]
     Active Substance: PRIMIDONE
     Dosage: UNK, UNKNOWN
  8. FORTEO [Suspect]
     Active Substance: TERIPARATIDE
     Indication: OSTEOPOROSIS
     Dosage: 20 UG, QD
     Dates: start: 201103

REACTIONS (15)
  - Mood swings [Unknown]
  - Emotional disorder [Unknown]
  - Nervous system disorder [Unknown]
  - Anger [Unknown]
  - Dizziness [Recovered/Resolved]
  - Mental impairment [Unknown]
  - Speech disorder [Recovering/Resolving]
  - Fall [Unknown]
  - Arthritis [Unknown]
  - Headache [Recovering/Resolving]
  - Limb discomfort [Recovered/Resolved]
  - Pain in extremity [Not Recovered/Not Resolved]
  - Limb injury [Unknown]
  - Pain in extremity [Unknown]
  - Dementia [Unknown]

NARRATIVE: CASE EVENT DATE: 201103
